FAERS Safety Report 22385867 (Version 6)
Quarter: 2025Q4

REPORT INFORMATION
  Report Type: Spontaneous
  Country: US (occurrence: US)
  Receive Date: 20230530
  Receipt Date: 20251016
  Transmission Date: 20260117
  Serious: Yes (Other)
  Sender: PFIZER
  Company Number: US-PFIZER INC-PV202300018694

PATIENT
  Age: 68 Year
  Sex: Female
  Weight: 158 kg

DRUGS (6)
  1. IBRANCE [Suspect]
     Active Substance: PALBOCICLIB
     Indication: Breast cancer female
     Dosage: 225 MG (TAKE 1 OF 100MG WITH 1 OF 125MG)
  2. IBRANCE [Suspect]
     Active Substance: PALBOCICLIB
     Indication: Breast cancer metastatic
     Dosage: 100 MG, CYCLIC (TAKE 1 TAB BY MOUTH 1 DAILY, TAKE ON DAYS 1-21 EVERY 28 DAYS)
     Route: 048
     Dates: start: 201710, end: 20230901
  3. IBRANCE [Suspect]
     Active Substance: PALBOCICLIB
     Dosage: 100 MG
  4. FULVESTRANT [Concomitant]
     Active Substance: FULVESTRANT
     Indication: Breast cancer female
     Dosage: UNK
     Dates: start: 201710
  5. FASLODEX [Concomitant]
     Active Substance: FULVESTRANT
     Indication: Oestrogen therapy
     Dosage: UNK, MONTHLY
     Dates: start: 201710
  6. XGEVA [Concomitant]
     Active Substance: DENOSUMAB
     Indication: Metastases to bone
     Dosage: UNK
     Dates: start: 201710

REACTIONS (7)
  - Tooth fracture [Unknown]
  - Dental caries [Unknown]
  - Headache [Unknown]
  - Dental discomfort [Recovering/Resolving]
  - Mental disorder [Unknown]
  - Tongue exfoliation [Unknown]
  - Off label use [Unknown]

NARRATIVE: CASE EVENT DATE: 20230501
